FAERS Safety Report 10422076 (Version 1)
Quarter: 2014Q3

REPORT INFORMATION
  Report Type: Spontaneous
  Country: US (occurrence: US)
  Receive Date: 20140901
  Receipt Date: 20140901
  Transmission Date: 20150326
  Serious: Yes (Other)
  Sender: FDA-Public Use
  Company Number: US-SA-2013SA127650

PATIENT
  Age: 65 Year
  Sex: Female

DRUGS (6)
  1. AVAPRO [Suspect]
     Active Substance: IRBESARTAN
     Indication: BLOOD PRESSURE
     Dosage: TAKEN FROM: YEARS AGO.
     Route: 065
  2. IRBESARTAN. [Suspect]
     Active Substance: IRBESARTAN
     Route: 065
  3. AVAPRO [Suspect]
     Active Substance: IRBESARTAN
     Indication: BLOOD PRESSURE
     Route: 065
     Dates: start: 20131121
  4. AVAPRO [Suspect]
     Active Substance: IRBESARTAN
     Indication: BLOOD PRESSURE
     Route: 065
  5. AVAPRO [Suspect]
     Active Substance: IRBESARTAN
     Indication: BLOOD PRESSURE
     Route: 065
  6. AVAPRO [Suspect]
     Active Substance: IRBESARTAN
     Indication: BLOOD PRESSURE
     Dosage: FREQUENCY- HALF TABLET A DAY
     Route: 065

REACTIONS (12)
  - Angina pectoris [Recovered/Resolved]
  - Dizziness [Unknown]
  - Drug ineffective [Unknown]
  - Malaise [Unknown]
  - Hypertension [Unknown]
  - Dizziness [Recovered/Resolved]
  - Peripheral swelling [Unknown]
  - Wrong technique in drug usage process [Unknown]
  - Loss of consciousness [Unknown]
  - Malaise [Recovered/Resolved]
  - Chest pain [Unknown]
  - Feeling abnormal [Recovered/Resolved]

NARRATIVE: CASE EVENT DATE: 201310
